FAERS Safety Report 5662797-2 (Version None)
Quarter: 2008Q1

REPORT INFORMATION
  Report Type: 
  Country: None (occurrence: None)
  Receive Date: 20080311
  Receipt Date: 20080311
  Transmission Date: 20080703
  Serious: Yes (Other)
  Sender: FDA-Public Use
  Company Number: None

PATIENT
  Sex: Female

DRUGS (3)
  1. AVONEX [Suspect]
     Indication: MULTIPLE SCLEROSIS
     Dosage: 30 MCG WEEKLY IN
     Dates: start: 20060927, end: 20070310
  2. BACLOFEN [Concomitant]
  3. NEURONTIN [Concomitant]

REACTIONS (2)
  - HEPATIC CIRRHOSIS [None]
  - SPLENOMEGALY [None]
